FAERS Safety Report 8440626-1 (Version None)
Quarter: 2012Q2

REPORT INFORMATION
  Report Type: 
  Country: None (occurrence: None)
  Receive Date: 20120615
  Receipt Date: 20120612
  Transmission Date: 20120825
  Serious: Yes (Other)
  Sender: FDA-Public Use
  Company Number: US-MERCK-1010USA01046

PATIENT
  Age: 86 Year
  Sex: Female

DRUGS (8)
  1. COZAAR [Suspect]
     Route: 048
     Dates: start: 20120401, end: 20120510
  2. SULAR [Concomitant]
     Route: 065
  3. MICARDIS [Suspect]
     Route: 065
  4. COZAAR [Suspect]
     Indication: HYPERTENSION
     Route: 048
     Dates: start: 20071001, end: 20090101
  5. COZAAR [Suspect]
     Route: 048
     Dates: start: 20110401
  6. TEKTURNA [Suspect]
     Route: 065
  7. PLAVIX [Concomitant]
     Route: 065
  8. AVAPRO [Suspect]
     Route: 065

REACTIONS (18)
  - ABASIA [None]
  - MUSCULOSKELETAL STIFFNESS [None]
  - PALPITATIONS [None]
  - PARALYSIS [None]
  - MYALGIA [None]
  - HYPOAESTHESIA [None]
  - GAIT DISTURBANCE [None]
  - FEELING ABNORMAL [None]
  - HYPERTENSION [None]
  - ASTHENIA [None]
  - HEAD DISCOMFORT [None]
  - MUSCULAR WEAKNESS [None]
  - MALAISE [None]
  - DIZZINESS [None]
  - LYMPHADENOPATHY [None]
  - DYSSTASIA [None]
  - MOVEMENT DISORDER [None]
  - PAIN [None]
